FAERS Safety Report 21206877 (Version 1)
Quarter: 2022Q3

REPORT INFORMATION
  Report Type: Other
  Country: None (occurrence: US)
  Receive Date: 20220812
  Receipt Date: 20220812
  Transmission Date: 20221026
  Serious: Yes (Hospitalization)
  Sender: FDA-Public Use
  Company Number: US-Vista Pharmaceuticals Inc.-2131808

PATIENT
  Age: 51 Year
  Sex: Female

DRUGS (2)
  1. SULFAMETHOXAZOLE AND TRIMETHOPRIM [Suspect]
     Active Substance: SULFAMETHOXAZOLE\TRIMETHOPRIM
     Indication: Urinary tract infection
     Route: 065
  2. PHENAZOPYRIDINE [Suspect]
     Active Substance: PHENAZOPYRIDINE
     Route: 065

REACTIONS (3)
  - Methaemoglobinaemia [Recovering/Resolving]
  - Sulphaemoglobinaemia [Recovering/Resolving]
  - Anaemia Heinz body [Recovering/Resolving]
